FAERS Safety Report 4345099-6 (Version None)
Quarter: 2004Q2

REPORT INFORMATION
  Report Type: 
  Country: None (occurrence: None)
  Receive Date: 20040421
  Receipt Date: 20040421
  Transmission Date: 20050107
  Serious: Yes (Congenital Anomaly)
  Sender: FDA-Public Use
  Company Number: None

PATIENT
  Sex: Female
  Weight: 68.0396 kg

DRUGS (2)
  1. BRETHINE [Suspect]
     Indication: PREMATURE LABOUR
     Dosage: INJECTION 2-3 TIMES PILL
     Dates: start: 19991001, end: 19991001
  2. BRETHINE [Suspect]
     Indication: PREMATURE LABOUR
     Dosage: INJECTION 2-3 TIMES PILL
     Dates: start: 19991101, end: 19991101

REACTIONS (7)
  - ASPERGER'S DISORDER [None]
  - COMPLICATIONS OF MATERNAL EXPOSURE TO THERAPEUTIC DRUGS [None]
  - FEAR [None]
  - MATERNAL DRUGS AFFECTING FOETUS [None]
  - NERVOUSNESS [None]
  - SENSORY DISTURBANCE [None]
  - TREMOR [None]
